FAERS Safety Report 23818617 (Version 2)
Quarter: 2024Q2

REPORT INFORMATION
  Report Type: Spontaneous
  Country: GB (occurrence: None)
  Receive Date: 20240506
  Receipt Date: 20240611
  Transmission Date: 20240716
  Serious: Yes (Hospitalization)
  Sender: FDA-Public Use
  Company Number: GB-ROCHE-3554163

PATIENT
  Age: 19 Year
  Sex: Female

DRUGS (1)
  1. OCREVUS [Suspect]
     Active Substance: OCRELIZUMAB
     Indication: Relapsing-remitting multiple sclerosis
     Route: 042
     Dates: start: 20220808, end: 20230906

REACTIONS (7)
  - Neutropenic sepsis [Recovered/Resolved]
  - Pain in jaw [Unknown]
  - Vomiting [Unknown]
  - C-reactive protein increased [Unknown]
  - Pyrexia [Unknown]
  - Lethargy [Unknown]
  - Neutropenia [Unknown]

NARRATIVE: CASE EVENT DATE: 20230930
